FAERS Safety Report 5996300-4 (Version None)
Quarter: 2008Q4

REPORT INFORMATION
  Report Type: 
  Country: None (occurrence: None)
  Receive Date: 20081212
  Receipt Date: 20080612
  Transmission Date: 20090506
  Serious: No
  Sender: FDA-Public Use
  Company Number: US-AMGEN-KDL284965

PATIENT
  Sex: Female
  Weight: 16.8 kg

DRUGS (3)
  1. ENBREL [Suspect]
     Indication: JUVENILE ARTHRITIS
     Route: 058
     Dates: start: 20070622
  2. METHOTREXATE [Concomitant]
     Route: 048
  3. NAPROXEN [Concomitant]

REACTIONS (5)
  - ARTHRALGIA [None]
  - INJECTION SITE HAEMATOMA [None]
  - INJECTION SITE HAEMORRHAGE [None]
  - JOINT DISLOCATION [None]
  - JOINT INJURY [None]
